FAERS Safety Report 6710298-2 (Version None)
Quarter: 2010Q2

REPORT INFORMATION
  Report Type: 
  Country: None (occurrence: None)
  Receive Date: 20100504
  Receipt Date: 20100420
  Transmission Date: 20101027
  Serious: Yes (Hospitalization)
  Sender: FDA-Public Use
  Company Number: US-MYLANLABS-2010S1006680

PATIENT
  Age: 34 Year
  Sex: Female

DRUGS (2)
  1. PROPRANOLOL [Suspect]
     Dosage: SHE HAD INGESTED ^LARGE AMOUNTS OF PROPRANOLOL^
     Route: 048
  2. CLONAZEPAM [Suspect]
     Dosage: SHE HAD INGESTED ^LARGE AMOUNTS^ OF CLONAZEPAM
     Route: 048

REACTIONS (4)
  - BRADYCARDIA [None]
  - BRUGADA SYNDROME [None]
  - HYPOTENSION [None]
  - INTENTIONAL OVERDOSE [None]
